FAERS Safety Report 8294294-2 (Version None)
Quarter: 2012Q2

REPORT INFORMATION
  Report Type: 
  Country: None (occurrence: None)
  Receive Date: 20120418
  Receipt Date: 20120413
  Transmission Date: 20120825
  Serious: Yes (Disabling)
  Sender: FDA-Public Use
  Company Number: 2011SP003496

PATIENT
  Sex: Female

DRUGS (2)
  1. LUNESTA [Suspect]
     Indication: INSOMNIA
     Route: 048
  2. AMBIEN [Concomitant]
     Indication: INSOMNIA

REACTIONS (13)
  - FALL [None]
  - MUSCULAR WEAKNESS [None]
  - CONTUSION [None]
  - MUSCULOSKELETAL DISCOMFORT [None]
  - BACK INJURY [None]
  - GAIT DISTURBANCE [None]
  - POST CONCUSSION SYNDROME [None]
  - LACERATION [None]
  - BRAIN INJURY [None]
  - HEADACHE [None]
  - SOMNAMBULISM [None]
  - CONCUSSION [None]
  - SKIN INFECTION [None]
